FAERS Safety Report 20298543 (Version 10)
Quarter: 2022Q2

REPORT INFORMATION
  Report Type: Other
  Country: BE (occurrence: None)
  Receive Date: 20220105
  Receipt Date: 20220626
  Transmission Date: 20220720
  Serious: Yes (Life-Threatening, Hospitalization)
  Sender: FDA-Public Use
  Company Number: BE-ROCHE-2989761

PATIENT
  Age: 50 Year
  Sex: Female
  Weight: 85 kg

DRUGS (21)
  1. OCRELIZUMAB [Suspect]
     Active Substance: OCRELIZUMAB
     Indication: Relapsing-remitting multiple sclerosis
     Dosage: START DATE OF MOST RECENT DOSE OF OCRELIZUMAB PRIOR TO AE: 25/AUG/2021?DOSE LAST OCRELIZUMAB ADMIN P
     Route: 042
     Dates: start: 20190716
  2. PERDOLAN COMPOSITUM [Concomitant]
     Route: 054
     Dates: start: 2000
  3. AMIGRAN [RIBOFLAVIN] [Concomitant]
     Route: 048
     Dates: start: 20200820
  4. ZALDIAR [Concomitant]
     Active Substance: ACETAMINOPHEN\TRAMADOL HYDROCHLORIDE
     Dosage: 1 TABLET
     Route: 048
     Dates: start: 2000
  5. IMITREX [Concomitant]
     Active Substance: SUMATRIPTAN SUCCINATE
     Route: 058
     Dates: start: 2000
  6. BILASTINE [Concomitant]
     Active Substance: BILASTINE
     Route: 048
     Dates: start: 20210115
  7. SUMATRIPTAN [Concomitant]
     Active Substance: SUMATRIPTAN
     Route: 048
     Dates: start: 20100305
  8. VENLAFAXINE HYDROCHLORIDE [Concomitant]
     Active Substance: VENLAFAXINE HYDROCHLORIDE
     Route: 048
     Dates: start: 20210115
  9. VENLAFAXINE HYDROCHLORIDE [Concomitant]
     Active Substance: VENLAFAXINE HYDROCHLORIDE
     Route: 048
     Dates: start: 20210115
  10. AJOVY [Concomitant]
     Active Substance: FREMANEZUMAB-VFRM
     Route: 058
     Dates: start: 20210204
  11. CHOLECALCIFEROL [Concomitant]
     Active Substance: CHOLECALCIFEROL
     Dosage: 1 TIME PER WEEK
     Route: 048
     Dates: start: 20210608
  12. NEOTIGASON [Concomitant]
     Active Substance: ACITRETIN
     Route: 048
     Dates: start: 202101
  13. OTEZLA [Concomitant]
     Active Substance: APREMILAST
     Dosage: 1 TABLET
     Route: 048
     Dates: start: 202109, end: 20211208
  14. CURCUMIN [Concomitant]
     Active Substance: CURCUMIN
     Indication: Prophylaxis
     Dosage: 1 CAPSULE
     Route: 048
     Dates: start: 2021
  15. FERROUS SULFATE [Concomitant]
     Active Substance: FERROUS SULFATE
     Indication: Prophylaxis
     Route: 048
     Dates: start: 202202
  16. SELENIUM [Concomitant]
     Active Substance: SELENIUM
     Indication: Prophylaxis
     Route: 048
     Dates: start: 202202
  17. SOLU-MEDROL [Concomitant]
     Active Substance: METHYLPREDNISOLONE SODIUM SUCCINATE
     Route: 048
     Dates: start: 20220225, end: 20220225
  18. CETIRIZINE [Concomitant]
     Active Substance: CETIRIZINE HYDROCHLORIDE
     Route: 048
     Dates: start: 20220225, end: 20220225
  19. DAFALGAN [Concomitant]
     Active Substance: ACETAMINOPHEN
     Route: 048
     Dates: start: 20220225, end: 20220225
  20. CYSTEINE [Concomitant]
     Active Substance: CYSTEINE
     Route: 048
     Dates: start: 202105
  21. VALPROATE SODIUM [Concomitant]
     Active Substance: VALPROATE SODIUM
     Dosage: NEXT DOSE RECEIVED ON 17/FEB/2022.
     Route: 048
     Dates: start: 20210124, end: 20220216

REACTIONS (1)
  - COVID-19 [Recovered/Resolved]

NARRATIVE: CASE EVENT DATE: 20211127
